FAERS Safety Report 19351821 (Version 2)
Quarter: 2021Q2

REPORT INFORMATION
  Report Type: Report from Study
  Country: GB (occurrence: GB)
  Receive Date: 20210531
  Receipt Date: 20210625
  Transmission Date: 20210717
  Serious: Yes (Hospitalization, Other)
  Sender: FDA-Public Use
  Company Number: GB-GLAXOSMITHKLINE-GB2021EME113132

PATIENT
  Age: 64 Year
  Sex: Female

DRUGS (1)
  1. MEPOLIZUMAB [Suspect]
     Active Substance: MEPOLIZUMAB
     Indication: ASTHMA
     Dosage: 100 MG, Z, (MONTHLY)
     Route: 058
     Dates: start: 201904

REACTIONS (3)
  - Fatigue [Recovered/Resolved with Sequelae]
  - Hospitalisation [Recovered/Resolved with Sequelae]
  - Encephalitis [Recovering/Resolving]

NARRATIVE: CASE EVENT DATE: 20210512
